FAERS Safety Report 5877940-X (Version None)
Quarter: 2008Q3

REPORT INFORMATION
  Report Type: 
  Country: None (occurrence: None)
  Receive Date: 20080911
  Receipt Date: 20080903
  Transmission Date: 20090109
  Serious: Yes (Other)
  Sender: FDA-Public Use
  Company Number: B0535379A

PATIENT
  Sex: Female

DRUGS (8)
  1. BECOTIDE [Suspect]
     Indication: ASTHMA
     Dosage: 2PUFF TWICE PER DAY
     Route: 065
  2. FLIXOTIDE [Suspect]
     Indication: ASTHMA
     Dosage: 2PUFF TWICE PER DAY
     Route: 065
     Dates: start: 20080301
  3. SERETIDE [Suspect]
     Indication: ASTHMA
     Route: 055
     Dates: start: 20071001, end: 20080301
  4. VENTOLIN [Suspect]
     Indication: ASTHMA
     Route: 065
  5. MONTELUKAST SODIUM [Suspect]
     Indication: ASTHMA
     Route: 065
  6. NEOCLARITYN [Suspect]
     Indication: DRUG USE FOR UNKNOWN INDICATION
     Dosage: 5MG UNKNOWN
     Route: 065
  7. PREDNISOLONE [Suspect]
     Indication: ASTHMA
     Dosage: 15MG UNKNOWN
     Route: 065
  8. SYMBICORT [Suspect]
     Indication: ASTHMA
     Route: 065

REACTIONS (9)
  - ASTHMA [None]
  - DIARRHOEA [None]
  - DRUG INEFFECTIVE [None]
  - NASAL CONGESTION [None]
  - NASOPHARYNGITIS [None]
  - PEAK EXPIRATORY FLOW RATE DECREASED [None]
  - PRURITUS [None]
  - RASH GENERALISED [None]
  - RHINORRHOEA [None]
